FAERS Safety Report 26115578 (Version 2)
Quarter: 2025Q4

REPORT INFORMATION
  Report Type: Report from Study
  Country: IL (occurrence: IL)
  Receive Date: 20251203
  Receipt Date: 20251214
  Transmission Date: 20260118
  Serious: Yes (Hospitalization)
  Sender: ABBVIE
  Company Number: IL-ABBVIE-6390613

PATIENT
  Age: 73 Year
  Sex: Female

DRUGS (14)
  1. FOSCARBIDOPA\FOSLEVODOPA [Suspect]
     Active Substance: FOSCARBIDOPA\FOSLEVODOPA
     Indication: Parkinson^s disease
     Dosage: LOADING DOSE 1.50ML, BASE INFUSION RATE 0.32ML/H, HIGH INFUSION RATE 0.34ML/H, LOW INFUSION RATE ...
     Route: 058
     Dates: start: 20250210
  2. FOSCARBIDOPA\FOSLEVODOPA [Suspect]
     Active Substance: FOSCARBIDOPA\FOSLEVODOPA
     Dosage: LOADING DOSE 1.50ML, BASE INFUSION RATE 0.36ML/H, HIGH INFUSION RATE 0.38ML/H, LOW INFUSION RATE ...
     Route: 058
     Dates: start: 20250216, end: 20250216
  3. FOSCARBIDOPA\FOSLEVODOPA [Suspect]
     Active Substance: FOSCARBIDOPA\FOSLEVODOPA
     Dosage: LOADING DOSE 1.50ML, BASE INFUSION RATE 0.38ML/H, HIGH INFUSION RATE 0.40ML/H, LOW INFUSION RATE ...
     Route: 058
     Dates: start: 20250227, end: 20250227
  4. FOSCARBIDOPA\FOSLEVODOPA [Suspect]
     Active Substance: FOSCARBIDOPA\FOSLEVODOPA
     Dosage: LOADING DOSE 1.50ML, BASE INFUSION RATE 0.40ML/H, HIGH INFUSION RATE 0.42ML/H, LOW INFUSION RATE ...
     Route: 058
     Dates: start: 20250309, end: 20250309
  5. FOSCARBIDOPA\FOSLEVODOPA [Suspect]
     Active Substance: FOSCARBIDOPA\FOSLEVODOPA
     Dosage: LOADING DOSE 1.50ML, BASE INFUSION RATE 0.40ML/H, HIGH INFUSION RATE 0.42ML/H, LOW INFUSION RATE ...
     Route: 058
     Dates: start: 20250702, end: 20250702
  6. FOSCARBIDOPA\FOSLEVODOPA [Suspect]
     Active Substance: FOSCARBIDOPA\FOSLEVODOPA
     Dosage: LOADING DOSE 1.50ML, BASE INFUSION RATE 0.40ML/H, HIGH INFUSION RATE 0.42ML/H, LOW INFUSION RATE ...
     Route: 058
     Dates: start: 20250707, end: 20250707
  7. FOSCARBIDOPA\FOSLEVODOPA [Suspect]
     Active Substance: FOSCARBIDOPA\FOSLEVODOPA
     Route: 058
     Dates: start: 2025, end: 20251130
  8. FOSCARBIDOPA\FOSLEVODOPA [Suspect]
     Active Substance: FOSCARBIDOPA\FOSLEVODOPA
     Dosage: LOADING DOSE 1.50ML, BASE INFUSION RATE 0.32ML/H, HIGH INFUSION RATE 0.34ML/H, LOW INFUSION RATE ...
     Route: 058
     Dates: start: 20250211, end: 20250212
  9. REQUIP [Concomitant]
     Active Substance: ROPINIROLE HYDROCHLORIDE
     Indication: Product used for unknown indication
     Dosage: 8 MILLIGRAM
  10. AMANTADINE [Suspect]
     Active Substance: AMANTADINE
     Indication: Product used for unknown indication
     Route: 065
  11. Miro [Concomitant]
     Indication: Product used for unknown indication
  12. ELIQUIS [Concomitant]
     Active Substance: APIXABAN
     Indication: Product used for unknown indication
  13. SEROQUEL [Concomitant]
     Active Substance: QUETIAPINE FUMARATE
     Indication: Product used for unknown indication
     Dosage: 150 MILLIGRAM
  14. CARBIDOPA\LEVODOPA [Concomitant]
     Active Substance: CARBIDOPA\LEVODOPA
     Indication: Parkinson^s disease
     Route: 048

REACTIONS (10)
  - Fatigue [Unknown]
  - Panic attack [Unknown]
  - Poor quality sleep [Unknown]
  - Hallucination [Recovering/Resolving]
  - Hallucination, visual [Recovering/Resolving]
  - Condition aggravated [Unknown]
  - Asthenia [Unknown]
  - Mental impairment [Unknown]
  - Myoclonus [Recovered/Resolved]
  - Myoclonus [Unknown]

NARRATIVE: CASE EVENT DATE: 20250101
